FAERS Safety Report 4748901-9 (Version None)
Quarter: 2005Q3

REPORT INFORMATION
  Report Type: 
  Country: None (occurrence: None)
  Receive Date: 20050819
  Receipt Date: 20050808
  Transmission Date: 20060218
  Serious: Yes (Other)
  Sender: FDA-Public Use
  Company Number: 2005SE04546

PATIENT
  Age: 46 Year
  Sex: Female

DRUGS (2)
  1. AMIAS 8MG TABLETS [Suspect]
     Route: 048
     Dates: start: 20050523, end: 20050524
  2. TRANEXAMIC ACID [Concomitant]
     Indication: MENORRHAGIA
     Route: 048

REACTIONS (3)
  - DYSPNOEA [None]
  - PALPITATIONS [None]
  - TREMOR [None]
